FAERS Safety Report 18338915 (Version 1)
Quarter: 2020Q4

REPORT INFORMATION
  Report Type: Spontaneous
  Country: TR (occurrence: TR)
  Receive Date: 20201002
  Receipt Date: 20201002
  Transmission Date: 20210113
  Serious: Yes (Other)
  Sender: FDA-Public Use
  Company Number: TR-ELI_LILLY_AND_COMPANY-TR202009009524

PATIENT
  Age: 40 Year

DRUGS (1)
  1. COPELLOR 80MG [Suspect]
     Active Substance: IXEKIZUMAB
     Indication: HIDRADENITIS
     Dosage: UNK UNK, UNKNOWN
     Route: 065

REACTIONS (2)
  - Vasculitis [Unknown]
  - Off label use [Unknown]
